FAERS Safety Report 19103197 (Version 1)
Quarter: 2021Q2

REPORT INFORMATION
  Report Type: Spontaneous
  Country: IN (occurrence: IN)
  Receive Date: 20210407
  Receipt Date: 20210407
  Transmission Date: 20210717
  Serious: No
  Sender: FDA-Public Use
  Company Number: IN-LUPIN PHARMACEUTICALS INC.-2021-04348

PATIENT
  Age: 29 Year
  Sex: Female

DRUGS (2)
  1. DAPSONE. [Suspect]
     Active Substance: DAPSONE
     Indication: SUBCORNEAL PUSTULAR DERMATOSIS
     Dosage: 100 MILLIGRAM, QD
     Route: 065
  2. CLOBETASOL [Suspect]
     Active Substance: CLOBETASOL
     Indication: SUBCORNEAL PUSTULAR DERMATOSIS
     Dosage: UNK UNK, BID
     Route: 061

REACTIONS (1)
  - Exposure during pregnancy [Unknown]
